FAERS Safety Report 6463921-4 (Version None)
Quarter: 2009Q4

REPORT INFORMATION
  Report Type: 
  Country: None (occurrence: None)
  Receive Date: 20091201
  Receipt Date: 20091120
  Transmission Date: 20100525
  Serious: Yes (Other)
  Sender: FDA-Public Use
  Company Number: US-JNJFOC-20091106842

PATIENT
  Sex: Female

DRUGS (5)
  1. DURAGESIC-100 [Suspect]
     Indication: PAIN IN EXTREMITY
  2. DURAGESIC-100 [Suspect]
     Route: 062
  3. TOPROL-XL [Concomitant]
     Indication: CARDIAC DISORDER
     Route: 048
  4. TYLENOL (CAPLET) [Concomitant]
     Indication: PAIN
     Route: 048
  5. PLAVIX [Concomitant]
     Indication: CARDIAC DISORDER
     Route: 048

REACTIONS (6)
  - ABNORMAL LOSS OF WEIGHT [None]
  - CONTUSION [None]
  - DRUG ADMINISTERED AT INAPPROPRIATE SITE [None]
  - FALL [None]
  - NAUSEA [None]
  - OSTEOARTHRITIS [None]
